FAERS Safety Report 5060683-2 (Version None)
Quarter: 2006Q3

REPORT INFORMATION
  Report Type: 
  Country: None (occurrence: None)
  Receive Date: 20060720
  Receipt Date: 20060720
  Transmission Date: 20061208
  Serious: Yes (Hospitalization)
  Sender: FDA-Public Use
  Company Number: None

PATIENT
  Age: 37 Year
  Sex: Female
  Weight: 108.9 kg

DRUGS (8)
  1. BACTRIM [Suspect]
  2. LISINOPRIL [Concomitant]
  3. PROPRANOLOL HYDROCHLORIDE [Concomitant]
  4. PROCHLORPERAZINE TAB [Concomitant]
  5. METFORMIN HYDROCHLORIDE [Concomitant]
  6. APAP 325/BUTALBITAL 50/CAFF 40MG TAB [Concomitant]
  7. PROMETHAZINE [Concomitant]
  8. TEMAZEPAM [Concomitant]

REACTIONS (1)
  - URTICARIA [None]
